FAERS Safety Report 10990804 (Version 1)
Quarter: 2015Q2

REPORT INFORMATION
  Report Type: Report from Study
  Country: JP (occurrence: JP)
  Receive Date: 20150406
  Receipt Date: 20150406
  Transmission Date: 20150821
  Serious: Yes (Death, Hospitalization)
  Sender: FDA-Public Use
  Company Number: JP-CELGENE-087-50794-12093080

PATIENT
  Age: 79 Year
  Sex: Female
  Weight: 47 kg

DRUGS (19)
  1. VIDAZA [Suspect]
     Active Substance: AZACITIDINE
     Route: 058
     Dates: start: 20120815, end: 20120823
  2. PREMINENT [Concomitant]
     Active Substance: HYDROCHLOROTHIAZIDE\LOSARTAN POTASSIUM
     Indication: PRODUCT USED FOR UNKNOWN INDICATION
     Route: 065
  3. CEFPIROME SULFATE [Concomitant]
     Active Substance: CEFPIROME SULFATE
     Route: 065
     Dates: start: 20120713, end: 20120719
  4. VIDAZA [Suspect]
     Active Substance: AZACITIDINE
     Indication: MYELODYSPLASTIC SYNDROME
     Route: 058
     Dates: start: 20120316, end: 20120322
  5. ADALAT CC [Concomitant]
     Active Substance: NIFEDIPINE
     Indication: PRODUCT USED FOR UNKNOWN INDICATION
     Route: 065
  6. CEFPIROME SULFATE [Concomitant]
     Active Substance: CEFPIROME SULFATE
     Indication: PRODUCT USED FOR UNKNOWN INDICATION
     Route: 065
     Dates: start: 20120517, end: 20120522
  7. VALTREX [Concomitant]
     Active Substance: VALACYCLOVIR HYDROCHLORIDE
     Indication: PRODUCT USED FOR UNKNOWN INDICATION
     Route: 065
     Dates: start: 20130111, end: 20130117
  8. PLATELETS [Concomitant]
     Active Substance: HUMAN PLATELET, ALLOGENIC
     Indication: PRODUCT USED FOR UNKNOWN INDICATION
     Route: 041
     Dates: start: 2013
  9. VIDAZA [Suspect]
     Active Substance: AZACITIDINE
     Route: 058
     Dates: start: 20120411, end: 20120419
  10. JANUVIA [Concomitant]
     Active Substance: SITAGLIPTIN PHOSPHATE
     Indication: PRODUCT USED FOR UNKNOWN INDICATION
     Route: 065
  11. REBAMIPIDE [Concomitant]
     Active Substance: REBAMIPIDE
     Indication: PRODUCT USED FOR UNKNOWN INDICATION
     Route: 065
  12. VIDAZA [Suspect]
     Active Substance: AZACITIDINE
     Route: 058
     Dates: start: 20120514, end: 20120517
  13. VIDAZA [Suspect]
     Active Substance: AZACITIDINE
     Route: 058
     Dates: start: 20120711, end: 20120713
  14. THYRADIN S [Concomitant]
     Active Substance: LEVOTHYROXINE SODIUM
     Indication: PRODUCT USED FOR UNKNOWN INDICATION
     Route: 065
  15. VIDAZA [Suspect]
     Active Substance: AZACITIDINE
     Route: 058
     Dates: start: 20120606, end: 20120614
  16. VIDAZA [Suspect]
     Active Substance: AZACITIDINE
     Route: 058
     Dates: start: 20130424, end: 20130502
  17. AMARYL [Concomitant]
     Active Substance: GLIMEPIRIDE
     Indication: PRODUCT USED FOR UNKNOWN INDICATION
     Route: 065
  18. MAGLAX [Concomitant]
     Active Substance: MAGNESIUM OXIDE
     Indication: PRODUCT USED FOR UNKNOWN INDICATION
     Route: 065
  19. MUCODYNE [Concomitant]
     Active Substance: CARBOCYSTEINE
     Indication: PRODUCT USED FOR UNKNOWN INDICATION
     Route: 065
     Dates: start: 20130227, end: 20130515

REACTIONS (3)
  - Pyrexia [Recovered/Resolved]
  - Cerebral haemorrhage [Fatal]
  - Pyrexia [Recovered/Resolved]

NARRATIVE: CASE EVENT DATE: 20120517
